FAERS Safety Report 9201359 (Version 1)
Quarter: 2013Q2

REPORT INFORMATION
  Report Type: Spontaneous
  Country: JP (occurrence: JP)
  Receive Date: 20130401
  Receipt Date: 20130401
  Transmission Date: 20140414
  Serious: Yes (Other)
  Sender: FDA-Public Use
  Company Number: JP-BRISTOL-MYERS SQUIBB COMPANY-14753446

PATIENT
  Age: 0 Year
  Sex: Male
  Weight: 2.87 kg

DRUGS (7)
  1. ABILIFY TABS [Suspect]
     Dosage: BREASTFED FROM 13AUG-18AUG09(6DAYS)
     Route: 064
     Dates: start: 20090428, end: 20090812
  2. MAGLAX [Concomitant]
     Dosage: TABLET
     Route: 064
     Dates: start: 20090519, end: 20090601
  3. POSTERISAN FORTE [Concomitant]
     Dosage: OINTMENT;CREAM
     Dates: start: 20090519, end: 20090601
  4. LAXOBERON [Concomitant]
     Dosage: LIQUID
     Route: 064
     Dates: start: 20090602
  5. ZITHROMAC [Concomitant]
     Dosage: TABLET
     Route: 064
     Dates: start: 20090602, end: 20090602
  6. FERROMIA [Concomitant]
     Dosage: TABLET
     Dates: start: 20090602, end: 20090629
  7. UTEMERIN TABS [Concomitant]
     Dosage: ALSO RECEIVED UTERON (RITODRINE HCL) FROM 23-JUL-2009 TO 28-JUL-2009.
     Dates: start: 20090722, end: 20090722

REACTIONS (3)
  - Somnolence neonatal [Recovered/Resolved]
  - Apnoea neonatal [Recovered/Resolved]
  - Exposure during breast feeding [Unknown]
